FAERS Safety Report 23439636 (Version 2)
Quarter: 2024Q1

REPORT INFORMATION
  Report Type: Spontaneous
  Country: JP (occurrence: JP)
  Receive Date: 20240124
  Receipt Date: 20240313
  Transmission Date: 20240409
  Serious: Yes (Other)
  Sender: FDA-Public Use
  Company Number: JP-TEVA-VS-3134399

PATIENT
  Age: 77 Year
  Sex: Male

DRUGS (5)
  1. LEVOFLOXACIN [Suspect]
     Active Substance: LEVOFLOXACIN
     Indication: Urinary tract infection staphylococcal
     Route: 065
  2. ISONIAZID [Suspect]
     Active Substance: ISONIAZID
     Indication: Disseminated Bacillus Calmette-Guerin infection
     Route: 048
  3. BACILLUS CALMETTE-GUERIN ANTIGEN, UNSPECIFIED SUBSTRAIN [Suspect]
     Active Substance: BACILLUS CALMETTE-GUERIN ANTIGEN, UNSPECIFIED SUBSTRAIN
     Indication: Bladder transitional cell carcinoma
     Route: 043
  4. ETHAMBUTOL [Suspect]
     Active Substance: ETHAMBUTOL HYDROCHLORIDE
     Indication: Disseminated Bacillus Calmette-Guerin infection
     Route: 048
  5. RIFAMPIN [Suspect]
     Active Substance: RIFAMPIN
     Indication: Disseminated Bacillus Calmette-Guerin infection
     Route: 048

REACTIONS (3)
  - Disseminated Bacillus Calmette-Guerin infection [Unknown]
  - Drug ineffective [Unknown]
  - Urinary tract infection staphylococcal [Unknown]
